FAERS Safety Report 15423895 (Version 1)
Quarter: 2018Q3

REPORT INFORMATION
  Report Type: Spontaneous
  Country: GB (occurrence: GB)
  Receive Date: 20180925
  Receipt Date: 20180925
  Transmission Date: 20181010
  Serious: Yes (Hospitalization, Other)
  Sender: FDA-Public Use
  Company Number: GB-AMGEN-GBRSP2016177188

PATIENT
  Age: 77 Year
  Sex: Male

DRUGS (4)
  1. METHOTREXATE. [Concomitant]
     Active Substance: METHOTREXATE
     Dosage: 20 MG, WEEKLY
     Dates: start: 2005
  2. ENBREL [Suspect]
     Active Substance: ETANERCEPT
     Dosage: 50 MG, FORTNIGHTLY
     Route: 058
     Dates: start: 201808
  3. ENBREL [Suspect]
     Active Substance: ETANERCEPT
     Indication: RHEUMATOID ARTHRITIS
     Dosage: 50 MG, WEEKLY
     Route: 058
     Dates: start: 2015, end: 201808
  4. CELECOXIB. [Concomitant]
     Active Substance: CELECOXIB
     Dosage: 200 MG, DAILY
     Dates: start: 2003

REACTIONS (2)
  - Infection [Recovered/Resolved]
  - Loss of consciousness [Recovered/Resolved]

NARRATIVE: CASE EVENT DATE: 201708
